FAERS Safety Report 21349710 (Version 1)
Quarter: 2022Q3

REPORT INFORMATION
  Report Type: Spontaneous
  Country: US (occurrence: None)
  Receive Date: 20220916
  Receipt Date: 20220916
  Transmission Date: 20221027
  Serious: No
  Sender: FDA-Public Use
  Company Number: None

PATIENT
  Age: 48 Year
  Sex: Female
  Weight: 78.75 kg

DRUGS (1)
  1. MAGNESIUM CITRATE SALINE LAXATIVE [Suspect]
     Active Substance: MAGNESIUM CITRATE
     Indication: Colonoscopy
     Dosage: OTHER QUANTITY : 1 BOTTLE;?OTHER FREQUENCY : 4 HOURS PRIOR TO;?
     Route: 048
     Dates: start: 20220513, end: 20220513

REACTIONS (3)
  - Abdominal distension [None]
  - Gastrointestinal sounds abnormal [None]
  - Abdominal pain upper [None]

NARRATIVE: CASE EVENT DATE: 20220513
